FAERS Safety Report 7998317-7 (Version None)
Quarter: 2011Q4

REPORT INFORMATION
  Report Type: 
  Country: None (occurrence: None)
  Receive Date: 20111221
  Receipt Date: 20110706
  Transmission Date: 20120403
  Serious: No
  Sender: FDA-Public Use
  Company Number: US-GLAXOSMITHKLINE-A0935139A

PATIENT
  Age: 64 Year
  Sex: Male

DRUGS (11)
  1. ASPIRIN [Concomitant]
  2. CRESTOR [Concomitant]
  3. METFORMIN HCL [Concomitant]
  4. MULTI-VITAMINS [Concomitant]
  5. AMLODIPINE [Concomitant]
  6. DIOVAN [Concomitant]
  7. METOPROLOL TARTRATE [Concomitant]
  8. PROPAFENONE HCL [Concomitant]
     Dosage: 450MG PER DAY
  9. NIASPAN [Concomitant]
  10. WARFARIN SODIUM [Concomitant]
  11. LOVAZA [Suspect]
     Indication: HIGH DENSITY LIPOPROTEIN
     Dosage: 1CAP TWICE PER DAY
     Route: 048
     Dates: start: 20110630

REACTIONS (2)
  - MEDICATION RESIDUE [None]
  - PRODUCT QUALITY ISSUE [None]
